FAERS Safety Report 6322131-1 (Version None)
Quarter: 2009Q3

REPORT INFORMATION
  Report Type: 
  Country: None (occurrence: None)
  Receive Date: 20090824
  Receipt Date: 20090818
  Transmission Date: 20100115
  Serious: Yes (Hospitalization)
  Sender: FDA-Public Use
  Company Number: US-JNJFOC-20090806115

PATIENT
  Sex: Male
  Weight: 111.13 kg

DRUGS (3)
  1. FENTANYL TRANSDERMAL SYSTEM [Suspect]
     Indication: BACK PAIN
     Route: 062
  2. DEPRESSION PILLS [Suspect]
     Indication: DEPRESSION
     Route: 048
  3. XANAX [Concomitant]
     Indication: ANXIETY
     Route: 048

REACTIONS (8)
  - APPLICATION SITE PAIN [None]
  - APPLICATION SITE URTICARIA [None]
  - DEVICE LEAKAGE [None]
  - GALLBLADDER DISORDER [None]
  - INSOMNIA [None]
  - NAUSEA [None]
  - VOMITING [None]
  - WRONG TECHNIQUE IN DRUG USAGE PROCESS [None]
